FAERS Safety Report 4773049-7 (Version None)
Quarter: 2005Q3

REPORT INFORMATION
  Report Type: 
  Country: None (occurrence: None)
  Receive Date: 20050916
  Receipt Date: 20050905
  Transmission Date: 20060218
  Serious: No
  Sender: FDA-Public Use
  Company Number: B0392759A

PATIENT
  Age: 58 Year
  Sex: Male

DRUGS (4)
  1. EPIVIR [Suspect]
     Indication: HIV INFECTION
  2. SAQUINAVIR (FORMULATION UNKNOWN) (SAQUINAVIR) [Suspect]
     Indication: HIV INFECTION
  3. RITONAVIR (FORMULATION UNKNOWN) (RITONAVIR) [Suspect]
     Indication: HIV INFECTION
  4. STAVUDINE [Suspect]
     Indication: HIV INFECTION

REACTIONS (3)
  - ABSCESS [None]
  - CRYPTOCOCCOSIS [None]
  - IMMUNE RECONSTITUTION SYNDROME [None]
